FAERS Safety Report 17719708 (Version 6)
Quarter: 2023Q4

REPORT INFORMATION
  Report Type: Spontaneous
  Country: US (occurrence: None)
  Receive Date: 20200428
  Receipt Date: 20231020
  Transmission Date: 20240109
  Serious: Yes (Other)
  Sender: FDA-Public Use
  Company Number: 2020SE53588

PATIENT
  Age: 25607 Day
  Sex: Male
  Weight: 74.8 kg

DRUGS (113)
  1. PRILOSEC [Suspect]
     Active Substance: OMEPRAZOLE MAGNESIUM
     Indication: Gastrooesophageal reflux disease
     Dosage: GENERIC
     Dates: start: 201206, end: 201611
  2. PRILOSEC [Suspect]
     Active Substance: OMEPRAZOLE MAGNESIUM
     Indication: Gastrooesophageal reflux disease
     Dosage: GENERIC
     Route: 048
     Dates: start: 20140116
  3. PRILOSEC [Suspect]
     Active Substance: OMEPRAZOLE MAGNESIUM
     Indication: Gastrooesophageal reflux disease
     Dosage: GENRIC CAPSULE
     Dates: start: 20161208
  4. PRILOSEC [Suspect]
     Active Substance: OMEPRAZOLE MAGNESIUM
     Indication: Gastrooesophageal reflux disease
     Dosage: GENERIC
     Route: 048
     Dates: start: 20090107
  5. PRILOSEC [Suspect]
     Active Substance: OMEPRAZOLE MAGNESIUM
     Indication: Gastrooesophageal reflux disease
     Dosage: GENERIC
     Dates: start: 20161208, end: 20180315
  6. PRILOSEC [Suspect]
     Active Substance: OMEPRAZOLE MAGNESIUM
     Indication: Gastrooesophageal reflux disease
     Dosage: GENERIC CAPSULE
     Dates: start: 20120624, end: 20161128
  7. PRILOSEC [Suspect]
     Active Substance: OMEPRAZOLE MAGNESIUM
     Indication: Gastrooesophageal reflux disease
     Dosage: GENERIC
     Dates: start: 201805, end: 202007
  8. PRILOSEC [Suspect]
     Active Substance: OMEPRAZOLE MAGNESIUM
     Indication: Gastrooesophageal reflux disease
     Dosage: GENERIC
     Dates: start: 20220719
  9. PRILOSEC [Suspect]
     Active Substance: OMEPRAZOLE MAGNESIUM
     Indication: Gastrooesophageal reflux disease
     Dosage: GENERIC
     Dates: start: 19981023
  10. PRILOSEC [Suspect]
     Active Substance: OMEPRAZOLE MAGNESIUM
     Indication: Gastrooesophageal reflux disease
     Dosage: GENERIC
     Dates: start: 2012, end: 2016
  11. OMEPRAZOLE [Suspect]
     Active Substance: OMEPRAZOLE
     Indication: Gastrooesophageal reflux disease
     Dosage: GENERIC
     Dates: start: 201805, end: 202007
  12. OMEPRAZOLE [Suspect]
     Active Substance: OMEPRAZOLE
     Indication: Gastrooesophageal reflux disease
     Dosage: GENERIC
     Dates: start: 20220719
  13. OMEPRAZOLE [Suspect]
     Active Substance: OMEPRAZOLE
     Indication: Gastrooesophageal reflux disease
     Route: 048
  14. PREVACID [Suspect]
     Active Substance: LANSOPRAZOLE
     Indication: Gastrooesophageal reflux disease
     Dates: start: 200803, end: 20120223
  15. PREVACID [Suspect]
     Active Substance: LANSOPRAZOLE
     Indication: Gastrooesophageal reflux disease
     Dosage: GENERIC
     Dates: start: 201110, end: 201206
  16. PREVACID [Suspect]
     Active Substance: LANSOPRAZOLE
     Indication: Gastrooesophageal reflux disease
     Route: 048
     Dates: start: 20110812
  17. PREVACID [Suspect]
     Active Substance: LANSOPRAZOLE
     Indication: Gastrooesophageal reflux disease
     Dates: start: 20080304, end: 20111024
  18. PREVACID [Suspect]
     Active Substance: LANSOPRAZOLE
     Indication: Gastrooesophageal reflux disease
     Dates: start: 20111123, end: 20120402
  19. PREVACID [Suspect]
     Active Substance: LANSOPRAZOLE
     Indication: Gastrooesophageal reflux disease
     Dosage: GENERIC
     Dates: start: 20121123, end: 20121222
  20. PREVACID [Suspect]
     Active Substance: LANSOPRAZOLE
     Indication: Gastrooesophageal reflux disease
     Dosage: GENERIC
     Dates: start: 20120426, end: 20120623
  21. PREVACID [Suspect]
     Active Substance: LANSOPRAZOLE
     Indication: Gastrooesophageal reflux disease
     Dates: start: 2004, end: 2012
  22. PANTOPRAZOLE [Suspect]
     Active Substance: PANTOPRAZOLE
     Indication: Gastrooesophageal reflux disease
     Dosage: GENERIC
     Dates: start: 202007, end: 202108
  23. GLIPIZIDE [Concomitant]
     Active Substance: GLIPIZIDE
     Indication: Diabetes mellitus
     Dates: start: 2017
  24. ALOGLIPTIN [Concomitant]
     Active Substance: ALOGLIPTIN
     Indication: Type 2 diabetes mellitus
     Dates: start: 2019
  25. ATORVASTATIN [Concomitant]
     Active Substance: ATORVASTATIN
     Indication: Blood cholesterol increased
     Dates: start: 201311
  26. METOPROLOL [Concomitant]
     Active Substance: METOPROLOL
     Indication: Hypertension
     Dates: start: 2019
  27. METOPROLOL [Concomitant]
     Active Substance: METOPROLOL
     Indication: Hypertension
     Dates: start: 2019, end: 2022
  28. EFFEXOR [Concomitant]
     Active Substance: VENLAFAXINE HYDROCHLORIDE
     Indication: Depression
     Dates: start: 201906
  29. DOCUSATE SODIUM [Concomitant]
     Active Substance: DOCUSATE SODIUM
     Indication: Diarrhoea
     Dates: start: 201603
  30. ARIPIPRAZOLE [Concomitant]
     Active Substance: ARIPIPRAZOLE
     Indication: Bipolar disorder
     Dates: start: 201509, end: 201703
  31. AMLODIPINE [Concomitant]
     Active Substance: AMLODIPINE BESYLATE
     Indication: Hypertension
     Dates: start: 201311, end: 201708
  32. CLONAZEPAM [Concomitant]
     Active Substance: CLONAZEPAM
     Indication: Anxiety
     Dates: start: 200812, end: 201703
  33. WARFARIN [Concomitant]
     Active Substance: WARFARIN
     Indication: Anticoagulant therapy
     Dates: start: 201202, end: 201710
  34. TYLENOL [Concomitant]
     Active Substance: ACETAMINOPHEN
     Indication: Pain
     Dates: start: 2019
  35. CLONIDINE [Concomitant]
     Active Substance: CLONIDINE
  36. JALYN [Concomitant]
     Active Substance: DUTASTERIDE\TAMSULOSIN HYDROCHLORIDE
  37. VITAMIN E [Concomitant]
     Active Substance: .ALPHA.-TOCOPHEROL
  38. BENICAR [Concomitant]
     Active Substance: OLMESARTAN MEDOXOMIL
  39. HYDROCORTISONE [Concomitant]
     Active Substance: HYDROCORTISONE
  40. HERBALS\SAW PALMETTO [Concomitant]
     Active Substance: HERBALS\SAW PALMETTO
  41. ANDROGEL [Concomitant]
     Active Substance: TESTOSTERONE
  42. PROMETHAZINE [Concomitant]
     Active Substance: PROMETHAZINE HYDROCHLORIDE
  43. GLYCOLIC ACID [Concomitant]
     Active Substance: GLYCOLIC ACID
  44. NITROSTAT [Concomitant]
     Active Substance: NITROGLYCERIN
  45. FLUDROCORTISONE [Concomitant]
     Active Substance: FLUDROCORTISONE
  46. LUNESTA [Concomitant]
     Active Substance: ESZOPICLONE
  47. ASPIRIN [Concomitant]
     Active Substance: ASPIRIN
  48. OMEGA 3 [Concomitant]
     Active Substance: CAPSAICIN
  49. ALIGN [Concomitant]
     Active Substance: BIFIDOBACTERIUM LONGUM SUBSP. INFANTIS
  50. NIACIN [Concomitant]
     Active Substance: NIACIN
  51. BENADRYL [Concomitant]
     Active Substance: DIPHENHYDRAMINE HYDROCHLORIDE
  52. LIDODERM [Concomitant]
     Active Substance: LIDOCAINE
  53. BYSTOLIC [Concomitant]
     Active Substance: NEBIVOLOL HYDROCHLORIDE
  54. SIMVASTATIN [Concomitant]
     Active Substance: SIMVASTATIN
  55. ASCORBIC ACID [Concomitant]
     Active Substance: ASCORBIC ACID
  56. IBUPROFEN [Concomitant]
     Active Substance: IBUPROFEN
  57. COREG [Concomitant]
     Active Substance: CARVEDILOL
  58. ZIPRASIDONE [Concomitant]
     Active Substance: ZIPRASIDONE
  59. MECLIZINE [Concomitant]
     Active Substance: MECLIZINE HYDROCHLORIDE
  60. TORSEMIDE [Concomitant]
     Active Substance: TORSEMIDE
  61. TAMSULOSIN [Concomitant]
     Active Substance: TAMSULOSIN
  62. OZEMPIC [Concomitant]
     Active Substance: SEMAGLUTIDE
     Indication: Type 2 diabetes mellitus
     Dates: start: 2021
  63. ZOVIRAX [Concomitant]
     Active Substance: ACYCLOVIR
  64. BACLOFEN [Concomitant]
     Active Substance: BACLOFEN
  65. CHLORTHALIDONE [Concomitant]
     Active Substance: CHLORTHALIDONE
  66. FINASTERIDE [Concomitant]
     Active Substance: FINASTERIDE
  67. HYOSCYAMINE [Concomitant]
     Active Substance: HYOSCYAMINE
  68. NALOXONE [Concomitant]
     Active Substance: NALOXONE
  69. PREDNISONE [Concomitant]
     Active Substance: PREDNISONE
  70. TETRACAINE [Concomitant]
     Active Substance: TETRACAINE
  71. FLUORESCEIN [Concomitant]
     Active Substance: FLUORESCEIN
  72. VISTARIL [Concomitant]
     Active Substance: HYDROXYZINE PAMOATE
     Indication: Blood cholesterol increased
     Dates: start: 201311
  73. BIOTENE NOS [Concomitant]
     Active Substance: CETYLPYRIDINIUM CHLORIDE OR SODIUM FLUORIDE OR SODIUM MONOFLUOROPHOSPHATE OR GLUCOSE OXIDASE\LACTOFE
  74. OPANA [Concomitant]
     Active Substance: OXYMORPHONE HYDROCHLORIDE
  75. ONDANSETRON [Concomitant]
     Active Substance: ONDANSETRON
  76. MORPHINE [Concomitant]
     Active Substance: MORPHINE
  77. HYDRALAZINE [Concomitant]
     Active Substance: HYDRALAZINE HYDROCHLORIDE
  78. FLUVIRIN NOS [Concomitant]
     Active Substance: INFLUENZA VIRUS VACCINE
  79. GUANFACINE [Concomitant]
     Active Substance: GUANFACINE
  80. DUTASTERIDE [Concomitant]
     Active Substance: DUTASTERIDE
  81. METRONIDAZOLE [Concomitant]
     Active Substance: METRONIDAZOLE
  82. GABAPENTIN [Concomitant]
     Active Substance: GABAPENTIN
     Indication: Pain
     Dates: start: 2015, end: 2015
  83. GABAPENTIN [Concomitant]
     Active Substance: GABAPENTIN
     Indication: Pain
     Dates: start: 2022
  84. DIETARY SUPPLEMENT\HERBALS\MILK THISTLE [Concomitant]
     Active Substance: MILK THISTLE
     Indication: Supplementation therapy
  85. COLLAGEN [Concomitant]
     Active Substance: COLLAGEN
     Indication: Supplementation therapy
  86. RANITIDINE [Concomitant]
     Active Substance: RANITIDINE
     Dates: start: 2018, end: 2020
  87. FAMOTIDINE [Concomitant]
     Active Substance: FAMOTIDINE
     Dates: start: 2020
  88. CINNAMON [Concomitant]
     Active Substance: CINNAMON
     Indication: Supplementation therapy
  89. VITAMIN B12 [Concomitant]
     Active Substance: CYANOCOBALAMIN
     Indication: Supplementation therapy
  90. VITAMINS [Concomitant]
     Active Substance: VITAMINS
     Indication: Supplementation therapy
  91. BIOTIN [Concomitant]
     Active Substance: BIOTIN
     Indication: Supplementation therapy
  92. CETIRIZINE [Concomitant]
     Active Substance: CETIRIZINE HYDROCHLORIDE
     Dates: start: 2020
  93. CLINDAMYCIN [Concomitant]
     Active Substance: CLINDAMYCIN
     Dates: start: 2020
  94. FLUTICASONE [Concomitant]
     Active Substance: FLUTICASONE
     Dates: start: 2020
  95. HYDROCODONE [Concomitant]
     Active Substance: HYDROCODONE
     Dates: start: 2020
  96. PENICILLIN [Concomitant]
     Active Substance: PENICILLIN
  97. BUTALBITAL-ACETAMINOPHEN-CAFF [Concomitant]
  98. LIMBREL [Concomitant]
     Active Substance: DIETARY SUPPLEMENT\FLAVOCOXID
  99. ROXICODONE [Concomitant]
     Active Substance: OXYCODONE HYDROCHLORIDE
  100. MOVANTIK [Concomitant]
     Active Substance: NALOXEGOL OXALATE
     Dates: start: 20230216
  101. CHLORHEXIDINE [Concomitant]
     Active Substance: CHLORHEXIDINE\CHLORHEXIDINE GLUCONATE
     Dates: start: 20230216
  102. BIOTENE NOS [Concomitant]
     Active Substance: CETYLPYRIDINIUM CHLORIDE OR SODIUM FLUORIDE OR SODIUM MONOFLUOROPHOSPHATE OR GLUCOSE OXIDASE\LACTOFE
     Dates: start: 20230216
  103. RESTORIL [Concomitant]
     Active Substance: TEMAZEPAM
     Dates: start: 20230216
  104. NUCYNTA [Concomitant]
     Active Substance: TAPENTADOL HYDROCHLORIDE
     Dates: start: 20230216
  105. SCOPOLAMINE [Concomitant]
     Active Substance: SCOPOLAMINE
     Dates: start: 20230216
  106. ULTRAM [Concomitant]
     Active Substance: TRAMADOL HYDROCHLORIDE
  107. PROZAC [Concomitant]
     Active Substance: FLUOXETINE HYDROCHLORIDE
  108. TEGRETOL [Concomitant]
     Active Substance: CARBAMAZEPINE
  109. DOXYCYCLINE HYDROCHLORIDE [Concomitant]
     Active Substance: DOXYCYCLINE HYDROCHLORIDE
  110. GINKGO [Concomitant]
     Active Substance: GINKGO
  111. MAGNESIUM OXIDE [Concomitant]
     Active Substance: MAGNESIUM OXIDE
  112. EMPAGLIFLOZIN [Concomitant]
     Active Substance: EMPAGLIFLOZIN
     Indication: Diabetes mellitus
     Dates: start: 2023
  113. MIRALEX [Concomitant]

REACTIONS (8)
  - Acute kidney injury [Not Recovered/Not Resolved]
  - Chronic kidney disease [Not Recovered/Not Resolved]
  - Nephrogenic anaemia [Unknown]
  - Chronic kidney disease-mineral and bone disorder [Unknown]
  - Renal failure [Not Recovered/Not Resolved]
  - Renal impairment [Unknown]
  - Tubulointerstitial nephritis [Unknown]
  - Gastrooesophageal reflux disease [Not Recovered/Not Resolved]

NARRATIVE: CASE EVENT DATE: 20111028
